FAERS Safety Report 8501288-8 (Version None)
Quarter: 2012Q3

REPORT INFORMATION
  Report Type: 
  Country: None (occurrence: None)
  Receive Date: 20120710
  Receipt Date: 20120706
  Transmission Date: 20120928
  Serious: No
  Sender: FDA-Public Use
  Company Number: US-PFIZER INC-2012162462

PATIENT
  Age: 31 Year
  Sex: Female

DRUGS (1)
  1. LYRICA [Suspect]
     Indication: EPILEPSY
     Dosage: 150 MG, 2X/DAY

REACTIONS (3)
  - FATIGUE [None]
  - FEELING ABNORMAL [None]
  - MEMORY IMPAIRMENT [None]
